FAERS Safety Report 5102103-5 (Version None)
Quarter: 2006Q3

REPORT INFORMATION
  Report Type: 
  Country: None (occurrence: None)
  Receive Date: 20060907
  Receipt Date: 20060828
  Transmission Date: 20061208
  Serious: Yes (Death, Hospitalization, Other)
  Sender: FDA-Public Use
  Company Number: 29535-1

PATIENT
  Age: 60 Year
  Sex: Female

DRUGS (1)
  1. CYTARABINE [Suspect]
     Indication: CHRONIC LYMPHOCYTIC LEUKAEMIA REFRACTORY
     Dosage: 1000MG/M2/IV
     Route: 042
     Dates: start: 20060522, end: 20060525

REACTIONS (3)
  - ASTHENIA [None]
  - DISEASE PROGRESSION [None]
  - NAUSEA [None]
